FAERS Safety Report 23639115 (Version 2)
Quarter: 2025Q1

REPORT INFORMATION
  Report Type: Report from Study
  Country: US (occurrence: US)
  Receive Date: 20240315
  Receipt Date: 20250106
  Transmission Date: 20250408
  Serious: Yes (Hospitalization)
  Sender: ELI LILLY AND COMPANY
  Company Number: US-ELI_LILLY_AND_COMPANY-US202403002695

PATIENT
  Age: 74 Year
  Sex: Female

DRUGS (3)
  1. VERZENIO [Suspect]
     Active Substance: ABEMACICLIB
     Indication: Breast cancer
     Dosage: 200 MG, BID
     Route: 065
     Dates: start: 20240122
  2. VERZENIO [Suspect]
     Active Substance: ABEMACICLIB
     Dosage: 150 MG, BID
     Route: 065
  3. VERZENIO [Suspect]
     Active Substance: ABEMACICLIB
     Dosage: 150 MG, BID
     Route: 065
     Dates: end: 202411

REACTIONS (6)
  - Acute kidney injury [Unknown]
  - Hypophagia [Unknown]
  - Dehydration [Unknown]
  - Anaemia [Unknown]
  - Vomiting [Unknown]
  - Drug ineffective [Unknown]
